FAERS Safety Report 4764053-3 (Version None)
Quarter: 2005Q3

REPORT INFORMATION
  Report Type: 
  Country: None (occurrence: None)
  Receive Date: 20050906
  Receipt Date: 20050613
  Transmission Date: 20060218
  Serious: No
  Sender: FDA-Public Use
  Company Number: 2005-BP-09962BP

PATIENT
  Age: 75 Year
  Sex: Female
  Weight: 33.18 kg

DRUGS (7)
  1. SPIRIVA [Suspect]
     Indication: CHRONIC OBSTRUCTIVE PULMONARY DISEASE
     Dosage: 18 MCG (18 MCG, 1 IN 1 D), IH
     Route: 055
     Dates: start: 20050503
  2. XOPENEX [Concomitant]
  3. XANAX [Concomitant]
  4. CAPTOPRIL [Concomitant]
  5. DIGOXIN [Concomitant]
  6. OXYGEN (OXYGEN) [Concomitant]
  7. ATROVENT [Concomitant]

REACTIONS (1)
  - DRUG INEFFECTIVE [None]
